FAERS Safety Report 15593148 (Version 1)
Quarter: 2018Q4

REPORT INFORMATION
  Report Type: Spontaneous
  Country: US (occurrence: US)
  Receive Date: 20181107
  Receipt Date: 20181107
  Transmission Date: 20190205
  Serious: Yes (Hospitalization, Disabling)
  Sender: FDA-Public Use
  Company Number: None

PATIENT
  Age: 24 Year
  Sex: Female
  Weight: 63.9 kg

DRUGS (1)
  1. INVEGA SUSTENNA [Suspect]
     Active Substance: PALIPERIDONE PALMITATE
     Indication: DELUSIONAL DISORDER, UNSPECIFIED TYPE
     Dates: start: 20180831

REACTIONS (11)
  - Cognitive disorder [None]
  - Premature ageing [None]
  - Memory impairment [None]
  - Impaired work ability [None]
  - Weight increased [None]
  - Emotional poverty [None]
  - Asthenia [None]
  - Anger [None]
  - Loss of personal independence in daily activities [None]
  - Victim of sexual abuse [None]
  - Suicidal ideation [None]

NARRATIVE: CASE EVENT DATE: 20180903
